FAERS Safety Report 17415099 (Version 3)
Quarter: 2020Q2

REPORT INFORMATION
  Report Type: Report from Study
  Country: BR (occurrence: BR)
  Receive Date: 20200213
  Receipt Date: 20200519
  Transmission Date: 20200713
  Serious: Yes (Other)
  Sender: FDA-Public Use
  Company Number: NVSC2020BR036074

PATIENT
  Age: 33 Year
  Sex: Female

DRUGS (2)
  1. COSENTYX [Suspect]
     Active Substance: SECUKINUMAB
     Indication: PSORIASIS
  2. COSENTYX [Suspect]
     Active Substance: SECUKINUMAB
     Indication: PSORIATIC ARTHROPATHY
     Dosage: 150 MG (2 AMPOULES EVERY 28 DAYS)
     Route: 058
     Dates: start: 201907

REACTIONS (14)
  - Pain [Recovered/Resolved]
  - Foetal growth abnormality [Unknown]
  - Maternal exposure during pregnancy [Unknown]
  - Chills [Recovered/Resolved]
  - Gestational oedema [Unknown]
  - Malaise [Recovered/Resolved]
  - Joint swelling [Recovered/Resolved]
  - Influenza like illness [Recovered/Resolved]
  - Abortion spontaneous [Recovered/Resolved]
  - Fatigue [Not Recovered/Not Resolved]
  - Haemorrhage [Recovered/Resolved]
  - Abdominal distension [Recovered/Resolved]
  - Asthenia [Recovered/Resolved]
  - Abdominal pain [Recovered/Resolved]

NARRATIVE: CASE EVENT DATE: 202001
